FAERS Safety Report 22367093 (Version 1)
Quarter: 2023Q2

REPORT INFORMATION
  Report Type: Spontaneous
  Country: US (occurrence: None)
  Receive Date: 20230524
  Receipt Date: 20230524
  Transmission Date: 20230721
  Serious: Yes (Death)
  Sender: FDA-Public Use
  Company Number: None

PATIENT
  Age: 77 Year
  Sex: Male

DRUGS (1)
  1. TASIGNA [Suspect]
     Active Substance: NILOTINIB
     Indication: Chronic myeloid leukaemia
     Dosage: OTHER QUANTITY : 200 AM, 400 IN PM;?OTHER FREQUENCY : 200 AM, 400 IN PM;?
     Route: 048
     Dates: start: 20200905

REACTIONS (1)
  - Death [None]

NARRATIVE: CASE EVENT DATE: 20230507
